FAERS Safety Report 13699005 (Version 1)
Quarter: 2017Q2

REPORT INFORMATION
  Report Type: Spontaneous
  Country: GB (occurrence: GB)
  Receive Date: 20170628
  Receipt Date: 20170628
  Transmission Date: 20170830
  Serious: Yes (Hospitalization)
  Sender: FDA-Public Use
  Company Number: GB-MYLANLABS-2017M1038035

PATIENT

DRUGS (8)
  1. TEGRETOL [Concomitant]
     Active Substance: CARBAMAZEPINE
     Dates: start: 20170322
  2. TERBINAFINE. [Concomitant]
     Active Substance: TERBINAFINE
     Dosage: APPLY TWICE DAILY FOR 2 TO 4 WEEKS
     Dates: start: 20170322
  3. ZEROBASE [Concomitant]
     Dosage: APPLY AS DIRECTED
     Dates: start: 20170413
  4. LANSOPRAZOLE. [Suspect]
     Active Substance: LANSOPRAZOLE
     Indication: TRIGEMINAL NEURALGIA
     Route: 048
  5. HYDROCORTISONE. [Concomitant]
     Active Substance: HYDROCORTISONE
     Dosage: FOR 2 WEEKS
     Dates: start: 20170413
  6. SEEBRI BREEZHALER [Concomitant]
     Active Substance: GLYCOPYRROLATE
     Route: 055
     Dates: start: 20161219
  7. SYMBICORT [Concomitant]
     Active Substance: BUDESONIDE\FORMOTEROL FUMARATE DIHYDRATE
     Route: 055
     Dates: start: 20160905
  8. GABAPENTIN. [Concomitant]
     Active Substance: GABAPENTIN
     Dates: start: 20170322

REACTIONS (1)
  - Hyponatraemia [Recovered/Resolved]
